FAERS Safety Report 25129756 (Version 1)
Quarter: 2025Q1

REPORT INFORMATION
  Report Type: Spontaneous
  Country: US (occurrence: None)
  Receive Date: 20250327
  Receipt Date: 20250327
  Transmission Date: 20250409
  Serious: Yes (Death, Hospitalization)
  Sender: FDA-CTU
  Company Number: None

PATIENT
  Age: 39 Year
  Sex: Male
  Weight: 77.11 kg

DRUGS (10)
  1. RIFAMPIN [Suspect]
     Active Substance: RIFAMPIN
     Indication: Latent tuberculosis
  2. RIFAMPIN [Suspect]
     Active Substance: RIFAMPIN
     Indication: Psoriasis
  3. ENBREL [Suspect]
     Active Substance: ETANERCEPT
  4. AVENO [Concomitant]
  5. MELOXICAM [Concomitant]
     Active Substance: MELOXICAM
  6. ATTENAL [Concomitant]
  7. TRIAMCINOLONE [Concomitant]
     Active Substance: TRIAMCINOLONE
  8. PERCOCET [Concomitant]
     Active Substance: ACETAMINOPHEN\OXYCODONE HYDROCHLORIDE
  9. TUMS [Concomitant]
     Active Substance: CALCIUM CARBONATE
  10. TETRAHYDROZOLINE HYDROCHLORIDE [Concomitant]
     Active Substance: TETRAHYDROZOLINE HYDROCHLORIDE

REACTIONS (7)
  - Drug-induced liver injury [None]
  - Transfusion [None]
  - Dialysis [None]
  - Renal injury [None]
  - Cardiac arrest [None]
  - Upper gastrointestinal haemorrhage [None]
  - Disseminated intravascular coagulation [None]

NARRATIVE: CASE EVENT DATE: 20201201
